FAERS Safety Report 19449105 (Version 1)
Quarter: 2021Q2

REPORT INFORMATION
  Report Type: Spontaneous
  Country: CH (occurrence: CH)
  Receive Date: 20210622
  Receipt Date: 20210622
  Transmission Date: 20210717
  Serious: Yes (Other)
  Sender: FDA-Public Use
  Company Number: CH-GILEAD-2021-0535651

PATIENT
  Age: 40 Year
  Sex: Male
  Weight: 65 kg

DRUGS (4)
  1. DIAMORPHINE [Concomitant]
     Active Substance: DIAMORPHINE
     Dosage: 600 MG
     Route: 042
  2. BIKTARVY [Suspect]
     Active Substance: BICTEGRAVIR SODIUM\EMTRICITABINE\TENOFOVIR ALAFENAMIDE FUMARATE
     Indication: HIV INFECTION
     Route: 065
  3. GENVOYA [Suspect]
     Active Substance: COBICISTAT\ELVITEGRAVIR\EMTRICITABINE\TENOFOVIR ALAFENAMIDE FUMARATE
     Indication: HIV INFECTION
     Route: 065
  4. DIAMORPHINE [Concomitant]
     Active Substance: DIAMORPHINE
     Dosage: 1800 MG
     Route: 048

REACTIONS (2)
  - Viraemia [Not Recovered/Not Resolved]
  - Viraemia [Unknown]

NARRATIVE: CASE EVENT DATE: 202008
